FAERS Safety Report 16607058 (Version 1)
Quarter: 2019Q3

REPORT INFORMATION
  Report Type: Report from Study
  Country: JP (occurrence: JP)
  Receive Date: 20190722
  Receipt Date: 20190722
  Transmission Date: 20191004
  Serious: Yes (Hospitalization)
  Sender: FDA-Public Use
  Company Number: JP-ACTELION-A-CH2019-193092

PATIENT
  Age: 20 Year
  Sex: Female
  Weight: 75.2 kg

DRUGS (13)
  1. OPSUMIT [Suspect]
     Active Substance: MACITENTAN
     Indication: PULMONARY ARTERIAL HYPERTENSION
     Dosage: 10 MG, QD
     Route: 048
     Dates: start: 20151106, end: 20151109
  2. FUROSEMIDE. [Suspect]
     Active Substance: FUROSEMIDE
     Indication: RIGHT VENTRICULAR FAILURE
     Dosage: 60 MG, QD
     Route: 048
     Dates: start: 20151105
  3. K-SUPPLY [Concomitant]
     Active Substance: POTASSIUM CHLORIDE
  4. OXYGEN. [Concomitant]
     Active Substance: OXYGEN
  5. PROCYLIN [Concomitant]
     Active Substance: BERAPROST SODIUM
  6. SINGULAIR [Concomitant]
     Active Substance: MONTELUKAST SODIUM
  7. DIGOSIN [Concomitant]
     Active Substance: DIGOXIN
  8. ADCIRCA [Concomitant]
     Active Substance: TADALAFIL
  9. SPIRONOLACTONE. [Suspect]
     Active Substance: SPIRONOLACTONE
     Indication: RIGHT VENTRICULAR FAILURE
     Dosage: 50 MG, QD
     Route: 048
     Dates: start: 20151105
  10. FLUTIDE [Concomitant]
     Active Substance: FLUTICASONE PROPIONATE
  11. BAYASPIRIN [Concomitant]
     Active Substance: ASPIRIN
  12. RENIVACE [Suspect]
     Active Substance: ENALAPRIL
     Indication: RIGHT VENTRICULAR FAILURE
     Dosage: 5 MG, QD
     Route: 048
     Dates: end: 20151109
  13. THYRADIN S [Concomitant]
     Active Substance: LEVOTHYROXINE SODIUM

REACTIONS (1)
  - Renal impairment [Recovered/Resolved]

NARRATIVE: CASE EVENT DATE: 20151109
